FAERS Safety Report 5909720-0 (Version None)
Quarter: 2008Q4

REPORT INFORMATION
  Report Type: 
  Country: None (occurrence: None)
  Receive Date: 20081007
  Receipt Date: 20080925
  Transmission Date: 20090506
  Serious: Yes (Life-Threatening, Hospitalization)
  Sender: FDA-Public Use
  Company Number: JP-JNJFOC-20080806341

PATIENT
  Sex: Female
  Weight: 52 kg

DRUGS (15)
  1. REMICADE [Suspect]
     Route: 042
  2. REMICADE [Suspect]
     Route: 042
  3. REMICADE [Suspect]
     Route: 042
  4. REMICADE [Suspect]
     Route: 042
  5. REMICADE [Suspect]
     Route: 042
  6. REMICADE [Suspect]
     Indication: FISTULA
     Route: 042
  7. REMICADE [Suspect]
     Indication: CROHN'S DISEASE
     Dosage: 7 DOSES
     Route: 042
  8. LAC-B [Concomitant]
     Route: 048
     Dates: start: 19920101
  9. SELBEX [Concomitant]
     Route: 048
     Dates: start: 19920101
  10. ELENTAL [Concomitant]
     Route: 048
     Dates: start: 19920101
  11. RABEPRAZOLE SODIUM [Concomitant]
     Route: 048
     Dates: start: 20030901
  12. ALLELOCK [Concomitant]
     Route: 048
     Dates: start: 20040922
  13. SOLU-MEDROL [Concomitant]
  14. BUFFERIN [Concomitant]
     Route: 048
  15. LOPEMIN [Concomitant]
     Route: 048

REACTIONS (1)
  - ACUTE PROMYELOCYTIC LEUKAEMIA [None]
